FAERS Safety Report 9358031 (Version 1)
Quarter: 2013Q2

REPORT INFORMATION
  Report Type: Spontaneous
  Country: US (occurrence: US)
  Receive Date: 20130620
  Receipt Date: 20130620
  Transmission Date: 20140414
  Serious: Yes (Death, Hospitalization)
  Sender: FDA-Public Use
  Company Number: US-PFIZER INC-2013183256

PATIENT
  Age: 65 Year
  Sex: Female

DRUGS (1)
  1. XALKORI [Suspect]
     Indication: LUNG CARCINOMA CELL TYPE UNSPECIFIED RECURRENT
     Dosage: 250 MG, 2X/DAY
     Route: 048
     Dates: start: 201201, end: 201306

REACTIONS (2)
  - Disease progression [Fatal]
  - Lung carcinoma cell type unspecified recurrent [Fatal]
